FAERS Safety Report 7361492-1 (Version None)
Quarter: 2011Q1

REPORT INFORMATION
  Report Type: 
  Country: None (occurrence: None)
  Receive Date: 20110318
  Receipt Date: 20110307
  Transmission Date: 20110831
  Serious: Yes (Other)
  Sender: FDA-Public Use
  Company Number: PHHY2011US14763

PATIENT
  Sex: Female

DRUGS (3)
  1. TASIGNA [Interacting]
     Dosage: 300 MG, BID
     Route: 048
  2. STATINS [Interacting]
  3. TASIGNA [Suspect]
     Indication: CHRONIC MYELOID LEUKAEMIA
     Dosage: 300 MG, BID
     Route: 048
     Dates: start: 20110125

REACTIONS (7)
  - ABDOMINAL PAIN UPPER [None]
  - PAIN [None]
  - CHEST PAIN [None]
  - DRUG INTERACTION [None]
  - BACK PAIN [None]
  - ARTHRALGIA [None]
  - MYALGIA [None]
